FAERS Safety Report 15290213 (Version 1)
Quarter: 2018Q3

REPORT INFORMATION
  Report Type: Spontaneous
  Country: BE (occurrence: BE)
  Receive Date: 20180817
  Receipt Date: 20180817
  Transmission Date: 20181010
  Serious: Yes (Hospitalization, Other)
  Sender: FDA-Public Use
  Company Number: BE-JNJFOC-20180810287

PATIENT

DRUGS (2)
  1. INFLIXIMAB, RECOMBINANT [Suspect]
     Active Substance: INFLIXIMAB
     Indication: CROHN^S DISEASE
     Route: 042
  2. INFLIXIMAB, RECOMBINANT [Suspect]
     Active Substance: INFLIXIMAB
     Indication: COLITIS ULCERATIVE
     Route: 042

REACTIONS (12)
  - Arthralgia [Unknown]
  - Anaphylactic reaction [Unknown]
  - Breast cancer [Unknown]
  - Inflammatory bowel disease [Unknown]
  - Drug intolerance [Unknown]
  - Drug specific antibody [Unknown]
  - Therapeutic response decreased [Unknown]
  - Pancreatic carcinoma [Unknown]
  - Skin reaction [Unknown]
  - Infection [Unknown]
  - Drug level decreased [Unknown]
  - Wound [Unknown]
